FAERS Safety Report 20793518 (Version 1)
Quarter: 2022Q2

REPORT INFORMATION
  Report Type: Spontaneous
  Country: None (occurrence: US)
  Receive Date: 20220506
  Receipt Date: 20220506
  Transmission Date: 20220721
  Serious: No
  Sender: FDA-Public Use
  Company Number: US-Ajanta Pharma USA Inc.-2128523

PATIENT
  Sex: Female

DRUGS (1)
  1. MEMANTINE HYDROCHLORIDE [Suspect]
     Active Substance: MEMANTINE HYDROCHLORIDE

REACTIONS (1)
  - Night sweats [Unknown]
